FAERS Safety Report 13637313 (Version 3)
Quarter: 2017Q4

REPORT INFORMATION
  Report Type: Spontaneous
  Country: US (occurrence: US)
  Receive Date: 20170609
  Receipt Date: 20171208
  Transmission Date: 20180320
  Serious: No
  Sender: FDA-Public Use
  Company Number: US-ASTELLAS-2017US018885

PATIENT
  Sex: Male

DRUGS (2)
  1. CRESEMBA [Suspect]
     Active Substance: ISAVUCONAZONIUM SULFATE
     Indication: PNEUMONIA
     Dosage: 372 MG (2 CAPSULES EVERY 24 HOURS), ONCE DAILY
     Route: 048
     Dates: start: 20170512
  2. CRESEMBA [Suspect]
     Active Substance: ISAVUCONAZONIUM SULFATE
     Indication: ASPERGILLUS INFECTION
     Dosage: 372 MG (2 CAPSULES EVERY 24 HOURS), ONCE DAILY
     Route: 048
     Dates: start: 20170905

REACTIONS (1)
  - Off label use [Unknown]
